FAERS Safety Report 4611337-5 (Version None)
Quarter: 2005Q1

REPORT INFORMATION
  Report Type: 
  Country: None (occurrence: None)
  Receive Date: 20050315
  Receipt Date: 20050315
  Transmission Date: 20050727
  Serious: Yes (Hospitalization)
  Sender: FDA-Public Use
  Company Number: None

PATIENT
  Sex: Male
  Weight: 55.3388 kg

DRUGS (5)
  1. CISPLATIN [Suspect]
     Indication: TONSIL CANCER
     Dosage: 100 MG/ M2 (175 MG) X 2 Q 21 D
     Dates: start: 20050125, end: 20050215
  2. MANNITOL [Concomitant]
  3. ANZEMET [Concomitant]
  4. DECADRON [Concomitant]
  5. CISPLATIN [Concomitant]

REACTIONS (4)
  - ASTHENIA [None]
  - DEHYDRATION [None]
  - FEBRILE NEUTROPENIA [None]
  - WHITE BLOOD CELL COUNT DECREASED [None]
